FAERS Safety Report 8901804 (Version 1)
Quarter: 2012Q4

REPORT INFORMATION
  Report Type: Spontaneous
  Country: FR (occurrence: None)
  Receive Date: 20121105
  Receipt Date: 20121105
  Transmission Date: 20130627
  Serious: Yes (Hospitalization)
  Sender: FDA-Public Use
  Company Number: 7170295

PATIENT
  Age: 84 Year
  Sex: Female

DRUGS (6)
  1. LEVOTHYROX [Suspect]
     Indication: HYPOTHYROIDISM
     Route: 048
  2. INEXIUM (ESOMEPRAZOLE MAGNESIUM) [Concomitant]
  3. PAROXETIN (PAROXETINE) [Concomitant]
  4. PREVISCAN (FLUINDIONE) [Concomitant]
  5. CLARADOL (PARACETAMOL) [Concomitant]
  6. ZOPICLONE [Concomitant]

REACTIONS (9)
  - Atrial fibrillation [None]
  - Tachycardia [None]
  - Cardiac failure [None]
  - Pneumonia [None]
  - Pulmonary oedema [None]
  - Hyperthyroidism [None]
  - Bundle branch block left [None]
  - Supraventricular extrasystoles [None]
  - Ventricular extrasystoles [None]
